FAERS Safety Report 24986526 (Version 1)
Quarter: 2025Q1

REPORT INFORMATION
  Report Type: Spontaneous
  Country: US (occurrence: US)
  Receive Date: 20250219
  Receipt Date: 20250219
  Transmission Date: 20250408
  Serious: Yes (Hospitalization, Other)
  Sender: BAYER HEALTHCARE LLC
  Company Number: US-BAYER-2025A021253

PATIENT
  Age: 65 Year
  Sex: Male

DRUGS (2)
  1. BAYER LOW DOSE [Suspect]
     Active Substance: ASPIRIN
  2. APIXABAN [Suspect]
     Active Substance: APIXABAN

REACTIONS (4)
  - Arterial haemorrhage [Recovered/Resolved]
  - Compartment syndrome [Recovered/Resolved]
  - Procedural haemorrhage [Recovered/Resolved]
  - Blood loss anaemia [Recovered/Resolved]
